FAERS Safety Report 9285033 (Version 1)
Quarter: 2013Q2

REPORT INFORMATION
  Report Type: Spontaneous
  Country: US (occurrence: US)
  Receive Date: 20130513
  Receipt Date: 20130513
  Transmission Date: 20140414
  Serious: Yes (Other)
  Sender: FDA-Public Use
  Company Number: US-CELGENEUS-163-21880-13050287

PATIENT
  Age: 73 Year
  Sex: Male
  Weight: 74.18 kg

DRUGS (28)
  1. REVLIMID [Suspect]
     Indication: PLASMA CELL MYELOMA
     Dosage: 10 MILLIGRAM
     Route: 048
     Dates: start: 200610, end: 200705
  2. REVLIMID [Suspect]
     Dosage: 10 MILLIGRAM
     Route: 048
     Dates: start: 200904
  3. REVLIMID [Suspect]
     Dosage: 10MG-15MG
     Route: 048
     Dates: start: 201007, end: 201203
  4. REVLIMID [Suspect]
     Dosage: 10 MILLIGRAM
     Route: 048
     Dates: start: 20120314, end: 20120412
  5. THALOMID [Suspect]
     Indication: PLASMA CELL MYELOMA
     Route: 048
     Dates: start: 200310, end: 200501
  6. THALOMID [Suspect]
     Dosage: 50 MILLIGRAM
     Route: 048
     Dates: start: 20090210, end: 20090410
  7. DEXAMETHASONE [Concomitant]
     Indication: PLASMA CELL MYELOMA
     Dosage: 40 MILLIGRAM
     Route: 048
     Dates: start: 20120314, end: 20120412
  8. DEXAMETHASONE [Concomitant]
     Dates: start: 200605, end: 200608
  9. DEXAMETHASONE [Concomitant]
     Dates: start: 200610, end: 200705
  10. ZOMETA [Concomitant]
     Indication: PRODUCT USED FOR UNKNOWN INDICATION
     Dosage: .1429 MILLIGRAM
     Route: 058
     Dates: start: 20080605, end: 200807
  11. ZOMETA [Concomitant]
     Route: 058
     Dates: start: 20090421
  12. ZOMETA [Concomitant]
     Route: 058
     Dates: start: 20100713
  13. CALCIUM 500+D [Concomitant]
     Indication: PRODUCT USED FOR UNKNOWN INDICATION
     Dosage: 500MG-200
     Route: 065
  14. ASPIRINE [Concomitant]
     Indication: PRODUCT USED FOR UNKNOWN INDICATION
     Dosage: 81 MILLIGRAM
     Route: 048
  15. MOM [Concomitant]
     Indication: PRODUCT USED FOR UNKNOWN INDICATION
     Dosage: 30 MILLILITER
     Route: 048
  16. GABAPENTIN [Concomitant]
     Indication: PRODUCT USED FOR UNKNOWN INDICATION
     Dosage: 900 MILLIGRAM
     Route: 048
  17. LACTULOSE [Concomitant]
     Indication: CONSTIPATION
     Dosage: 15ML-30ML
     Route: 048
  18. VITAMIN D [Concomitant]
     Indication: PRODUCT USED FOR UNKNOWN INDICATION
     Dosage: 400 UNITS
     Route: 048
  19. MAGNESIUM CHLORIDE [Concomitant]
     Indication: PRODUCT USED FOR UNKNOWN INDICATION
     Dosage: 64 MILLIGRAM
     Route: 048
  20. IBUPROFEN [Concomitant]
     Indication: PAIN
     Dosage: 1200 MILLIGRAM
     Route: 048
  21. MULTIVITAMINS [Concomitant]
     Indication: PAIN
     Dosage: 1 TABLET
     Route: 048
  22. OXYCODONE HCL [Concomitant]
     Indication: PAIN
     Route: 048
  23. OXYCODONE HCL [Concomitant]
     Dosage: 20 MILLIGRAM
     Route: 048
  24. VITAMIN B6 [Concomitant]
     Indication: PRODUCT USED FOR UNKNOWN INDICATION
     Dosage: 200 MILLIGRAM
     Route: 048
  25. DOCUSATE SODIUM\SENNOSIDES [Concomitant]
     Indication: PRODUCT USED FOR UNKNOWN INDICATION
     Dosage: 8.6MG-50MG
     Route: 048
  26. DICLOXACILLIN SODIUM [Concomitant]
     Indication: PAIN
     Dosage: 2000 MILLIGRAM
     Route: 048
  27. OXYCONTIN [Concomitant]
     Indication: PAIN
     Dosage: 2000 MILLIGRAM
     Route: 048
  28. PAMIDRONATE [Concomitant]
     Indication: PRODUCT USED FOR UNKNOWN INDICATION
     Dosage: 81 MILLIGRAM
     Route: 050
     Dates: start: 20070214, end: 200804

REACTIONS (1)
  - Prostate cancer [Unknown]
